FAERS Safety Report 10455540 (Version 2)
Quarter: 2014Q3

REPORT INFORMATION
  Report Type: Spontaneous
  Country: US (occurrence: None)
  Receive Date: 20140818
  Receipt Date: 20140818
  Transmission Date: 20150326
  Serious: Yes (Hospitalization)
  Sender: FDA-Public Use
  Company Number: 20110815VANCO2194

PATIENT
  Sex: Male

DRUGS (1)
  1. VANCOCIN [Suspect]
     Active Substance: VANCOMYCIN HYDROCHLORIDE
     Indication: CLOSTRIDIUM DIFFICILE COLITIS
     Dosage: UNKNOWN (1 IN 6 HR), ORAL
     Route: 048
     Dates: start: 20110616

REACTIONS (2)
  - Infection [None]
  - Faecal incontinence [None]

NARRATIVE: CASE EVENT DATE: 201106
